FAERS Safety Report 19826856 (Version 1)
Quarter: 2021Q3

REPORT INFORMATION
  Report Type: Spontaneous
  Country: US (occurrence: US)
  Receive Date: 20210914
  Receipt Date: 20210914
  Transmission Date: 20211014
  Serious: Yes (Hospitalization)
  Sender: FDA-Public Use
  Company Number: None

PATIENT
  Sex: Female

DRUGS (13)
  1. UBRELVY [Concomitant]
     Active Substance: UBROGEPANT
  2. PANTOPRAZOLE [Concomitant]
     Active Substance: PANTOPRAZOLE
  3. LAMOTRIGINE. [Concomitant]
     Active Substance: LAMOTRIGINE
  4. AMITRIPTYLIN [Concomitant]
     Active Substance: AMITRIPTYLINE
  5. AUSTEDO [Suspect]
     Active Substance: DEUTETRABENAZINE
     Indication: GENERALISED ANXIETY DISORDER
     Route: 048
     Dates: start: 20190403
  6. TAMOXIFEN [Concomitant]
     Active Substance: TAMOXIFEN
  7. GABAPENTIN. [Concomitant]
     Active Substance: GABAPENTIN
  8. ONDANSETRON [Concomitant]
     Active Substance: ONDANSETRON
  9. FEROSUL [Concomitant]
     Active Substance: FERROUS SULFATE
  10. METOCLOPRA M [Concomitant]
  11. MIRTAZAPINE. [Concomitant]
     Active Substance: MIRTAZAPINE
  12. QUEIIAPINE [Concomitant]
  13. ESCITALOPRAM [Concomitant]
     Active Substance: ESCITALOPRAM OXALATE

REACTIONS (1)
  - Therapy interrupted [None]
